FAERS Safety Report 5457324-9 (Version None)
Quarter: 2007Q3

REPORT INFORMATION
  Report Type: 
  Country: None (occurrence: None)
  Receive Date: 20070918
  Receipt Date: 20070220
  Transmission Date: 20080115
  Serious: No
  Sender: FDA-Public Use
  Company Number: US-ASTRAZENECA-2007UW03310

PATIENT
  Age: 49 Year
  Sex: Female
  Weight: 134.3 kg

DRUGS (8)
  1. SEROQUEL [Suspect]
     Indication: ANXIETY
     Route: 048
     Dates: start: 20060601
  2. SEROQUEL [Suspect]
     Indication: INSOMNIA
     Route: 048
     Dates: start: 20060601
  3. SEROQUEL [Suspect]
     Route: 048
     Dates: start: 20060601
  4. SEROQUEL [Suspect]
     Route: 048
     Dates: start: 20060601
  5. LEXAPRO [Concomitant]
  6. CYMBALTA [Concomitant]
  7. HYDROCHLOROTHIAZIDE [Concomitant]
  8. MICARDIS [Concomitant]

REACTIONS (2)
  - TONSILLITIS [None]
  - WEIGHT INCREASED [None]
